FAERS Safety Report 13404951 (Version 2)
Quarter: 2017Q2

REPORT INFORMATION
  Report Type: Spontaneous
  Country: US (occurrence: US)
  Receive Date: 20170405
  Receipt Date: 20170411
  Transmission Date: 20170830
  Serious: Yes (Other)
  Sender: FDA-Public Use
  Company Number: US-BAYER-2017-058731

PATIENT
  Age: 47 Year
  Sex: Female

DRUGS (1)
  1. MIRENA [Suspect]
     Active Substance: LEVONORGESTREL
     Indication: CONTRACEPTION
     Dosage: 20 MCG/24HR, CONT
     Route: 015
     Dates: start: 201211

REACTIONS (5)
  - Vaginal haemorrhage [Recovered/Resolved]
  - Device issue [None]
  - Uterine haemorrhage [None]
  - Device use error [None]
  - Amenorrhoea [None]

NARRATIVE: CASE EVENT DATE: 201703
